FAERS Safety Report 6222206-1 (Version None)
Quarter: 2009Q2

REPORT INFORMATION
  Report Type: 
  Country: None (occurrence: None)
  Receive Date: 20090611
  Receipt Date: 20090601
  Transmission Date: 20091009
  Serious: Yes (Hospitalization)
  Sender: FDA-Public Use
  Company Number: PHHY2009AU19512

PATIENT
  Sex: Male

DRUGS (6)
  1. CLOZARIL [Suspect]
     Dosage: UNK
     Dates: start: 20090506, end: 20090515
  2. RISPERIDONE [Concomitant]
     Dosage: 2 MG, BID
     Route: 048
  3. ESCITALOPRAM [Concomitant]
     Dosage: 20 MG MANE
  4. THIAMINE HCL [Concomitant]
     Dosage: 100 MG DAILY
  5. RAMIPRIL [Concomitant]
     Dosage: UNK
     Dates: start: 20090519
  6. RISPERIDAL CONSTRA [Concomitant]

REACTIONS (17)
  - ACUTE PHASE REACTION [None]
  - ATRIAL FIBRILLATION [None]
  - BLOOD FIBRINOGEN INCREASED [None]
  - CHILLS [None]
  - COUGH [None]
  - DIARRHOEA [None]
  - LEFT VENTRICULAR DYSFUNCTION [None]
  - MYOCARDITIS [None]
  - PSYCHOTIC DISORDER [None]
  - PULMONARY OEDEMA [None]
  - PYREXIA [None]
  - RASH MACULO-PAPULAR [None]
  - RASH MORBILLIFORM [None]
  - SINUS TACHYCARDIA [None]
  - TACHYCARDIA [None]
  - THROMBOCYTOPENIA [None]
  - WHITE BLOOD CELL COUNT INCREASED [None]
